FAERS Safety Report 17134229 (Version 4)
Quarter: 2020Q4

REPORT INFORMATION
  Report Type: Spontaneous
  Country: US (occurrence: US)
  Receive Date: 20191210
  Receipt Date: 20201030
  Transmission Date: 20210113
  Serious: Yes (Other)
  Sender: FDA-Public Use
  Company Number: US-009507513-1912USA003778

PATIENT
  Age: 75 Year
  Sex: Female

DRUGS (7)
  1. VITAMIN D (UNSPECIFIED) [Concomitant]
     Active Substance: VITAMIN D NOS
     Dosage: UNK
  2. LIPITOR [Concomitant]
     Active Substance: ATORVASTATIN CALCIUM
     Dosage: 20 MILLIGRAM
  3. CALCIUM (UNSPECIFIED) [Concomitant]
     Active Substance: CALCIUM
     Dosage: UNK
  4. VITAMIN E [Concomitant]
     Active Substance: .ALPHA.-TOCOPHEROL
     Dosage: UNK
  5. FOSAMAX [Suspect]
     Active Substance: ALENDRONATE SODIUM
     Dosage: 70 MILLIGRAM PER WEEK FOR OVER 10 YEARS
     Route: 048
  6. ASPIRIN. [Concomitant]
     Active Substance: ASPIRIN
     Dosage: 81 MILLIGRAM
  7. DIOVAN [Concomitant]
     Active Substance: VALSARTAN
     Dosage: 160 MILLIGRAM

REACTIONS (4)
  - Device failure [Recovering/Resolving]
  - Osteonecrosis of jaw [Recovering/Resolving]
  - Oroantral fistula [Recovered/Resolved]
  - Chronic sinusitis [Recovering/Resolving]
